FAERS Safety Report 4893408-1 (Version None)
Quarter: 2006Q1

REPORT INFORMATION
  Report Type: 
  Country: None (occurrence: None)
  Receive Date: 20060127
  Receipt Date: 20051014
  Transmission Date: 20060701
  Serious: Yes (Hospitalization)
  Sender: FDA-Public Use
  Company Number: FR-BRISTOL-MYERS SQUIBB COMPANY-13145339

PATIENT
  Age: 60 Year
  Sex: Male

DRUGS (3)
  1. AMIKLIN [Suspect]
     Route: 042
     Dates: start: 20050420, end: 20050425
  2. FLAGYL [Suspect]
     Route: 042
     Dates: start: 20050420
  3. CLAVENTIN [Suspect]
     Route: 042
     Dates: start: 20050420

REACTIONS (2)
  - PRURITUS [None]
  - PURPURA [None]
